FAERS Safety Report 8583755 (Version 4)
Quarter: 2012Q4

REPORT INFORMATION
  Report Type: Report from Study
  Country: IT (occurrence: IT)
  Receive Date: 20120529
  Receipt Date: 20121018
  Transmission Date: 20130627
  Serious: Yes (Hospitalization)
  Sender: FDA-Public Use
  Company Number: IT-GLAXOSMITHKLINE-B0804241A

PATIENT
  Age: 75 Year
  Sex: Female

DRUGS (1)
  1. LAPATINIB [Suspect]
     Indication: CHORDOMA
     Dosage: 1500MG Per day
     Route: 048
     Dates: start: 20111226

REACTIONS (1)
  - Confusional state [Recovered/Resolved]
